FAERS Safety Report 16351453 (Version 2)
Quarter: 2019Q3

REPORT INFORMATION
  Report Type: Spontaneous
  Country: US (occurrence: US)
  Receive Date: 20190524
  Receipt Date: 20190731
  Transmission Date: 20191004
  Serious: No
  Sender: FDA-Public Use
  Company Number: US-BRISTOL-MYERS SQUIBB COMPANY-BMS-2019-050916

PATIENT
  Age: 56 Year
  Sex: Female

DRUGS (1)
  1. SPRYCEL [Suspect]
     Active Substance: DASATINIB
     Indication: CHRONIC MYELOID LEUKAEMIA
     Dosage: 80 MILLIGRAM, QD
     Route: 048
     Dates: start: 20180706

REACTIONS (2)
  - Dehydration [Unknown]
  - Chills [Unknown]

NARRATIVE: CASE EVENT DATE: 201905
